FAERS Safety Report 7419171-8 (Version None)
Quarter: 2011Q2

REPORT INFORMATION
  Report Type: 
  Country: None (occurrence: None)
  Receive Date: 20110415
  Receipt Date: 20110408
  Transmission Date: 20111010
  Serious: No
  Sender: FDA-Public Use
  Company Number: US-CEPHALON-2011001762

PATIENT
  Sex: Female

DRUGS (2)
  1. FENTORA [Suspect]
     Route: 002
  2. ACTIQ [Suspect]
     Route: 002

REACTIONS (1)
  - DRUG PRESCRIBING ERROR [None]
